FAERS Safety Report 5151744-8 (Version None)
Quarter: 2006Q4

REPORT INFORMATION
  Report Type: 
  Country: None (occurrence: None)
  Receive Date: 20061107
  Receipt Date: 20061019
  Transmission Date: 20070319
  Serious: Yes (Hospitalization, Other)
  Sender: FDA-Public Use
  Company Number: FR200610003190

PATIENT
  Age: 49 Year
  Sex: Male

DRUGS (3)
  1. HUMALOG [Suspect]
     Dosage: SUBCUTANEOUS
     Route: 058
  2. HUMALOG [Suspect]
  3. IMOVANE         (ZOPICLONE) [Concomitant]

REACTIONS (6)
  - BLOOD ETHANOL INCREASED [None]
  - HYPOGLYCAEMIC COMA [None]
  - HYPOKALAEMIA [None]
  - HYPOTHERMIA [None]
  - INTENTIONAL OVERDOSE [None]
  - POISONING [None]
